FAERS Safety Report 7746953 (Version 2)
Quarter: 2012Q4

REPORT INFORMATION
  Report Type: Spontaneous
  Country: US (occurrence: None)
  Receive Date: 20101208
  Receipt Date: 20121024
  Transmission Date: 20130627
  Serious: Yes (Hospitalization, Other)
  Sender: FDA-Public Use
  Company Number: JPI-P-013106

PATIENT
  Age: 67 Year
  Sex: Male
  Weight: 90.72 kg

DRUGS (25)
  1. XYREM [Suspect]
     Indication: SLEEP DISORDER
     Dosage: (4.5 gm, 2 in 1 D)
     Route: 048
     Dates: start: 20050216
  2. XYREM [Suspect]
     Indication: REM SLEEP ABNORMAL
     Dosage: (4.5 gm, 2 in 1 D)
     Route: 048
     Dates: start: 20050216
  3. XYREM [Suspect]
     Indication: SLEEP DISORDER
     Dosage: (4.5 gm, 3 in 1 D)
     Route: 048
     Dates: start: 20101006, end: 2010
  4. XYREM [Suspect]
     Indication: REM SLEEP ABNORMAL
     Dosage: (4.5 gm, 3 in 1 D)
     Route: 048
     Dates: start: 20101006, end: 2010
  5. XYREM [Suspect]
     Indication: SLEEP DISORDER
     Dosage: (4.5gm first/ 3.75gm second/ 3gm third dose)
     Route: 048
     Dates: start: 2010
  6. XYREM [Suspect]
     Indication: REM SLEEP ABNORMAL
     Dosage: (4.5gm first/ 3.75gm second/ 3gm third dose)
     Route: 048
     Dates: start: 2010
  7. XYREM [Suspect]
     Indication: SLEEP DISORDER
     Dosage: APPROXIMATELY 22.5 GM TO 45 GM ONCE)
     Route: 048
     Dates: start: 20101123, end: 20101123
  8. XYREM [Suspect]
     Indication: REM SLEEP ABNORMAL
     Dosage: APPROXIMATELY 22.5 GM TO 45 GM ONCE)
     Route: 048
     Dates: start: 20101123, end: 20101123
  9. XYREM [Suspect]
     Indication: SLEEP DISORDER
     Dosage: (4.5 GM, 3 IN 1 D)
     Route: 048
  10. XYREM [Suspect]
     Indication: REM SLEEP ABNORMAL
     Dosage: (4.5 GM, 3 IN 1 D)
     Route: 048
  11. TAMSULOSIN HYDROCHLORIDE [Concomitant]
  12. DULOXETINE HYDROCHLORIDE [Concomitant]
  13. ASENAPINE [Concomitant]
  14. LORAZEPAM [Concomitant]
  15. RAMELTEON [Concomitant]
  16. MODAFINIL [Concomitant]
  17. L-METHYLFOLATE CALCIUM [Concomitant]
  18. ARMODAFINIL [Concomitant]
  19. ZONISAMIDE [Concomitant]
  20. ZIPRASIDONE [Concomitant]
  21. ARIPIRAZOLE [Concomitant]
  22. HYDROCHLOROTHIAZIDE [Concomitant]
  23. SIMVASTATIN [Concomitant]
  24. METOPROLOL [Concomitant]
  25. ASPIRIN [Concomitant]

REACTIONS (8)
  - Dissociative identity disorder [None]
  - Incorrect dose administered [None]
  - Poor quality sleep [None]
  - Dyspnoea [None]
  - Somnolence [None]
  - Restlessness [None]
  - Repetitive speech [None]
  - Drug detoxification [None]
